FAERS Safety Report 6327162-3 (Version None)
Quarter: 2009Q3

REPORT INFORMATION
  Report Type: 
  Country: None (occurrence: None)
  Receive Date: 20090825
  Receipt Date: 20090819
  Transmission Date: 20100115
  Serious: Yes (Hospitalization)
  Sender: FDA-Public Use
  Company Number: B0589638A

PATIENT
  Age: 67 Year
  Sex: Female

DRUGS (3)
  1. ZANTAC [Suspect]
     Indication: PREMEDICATION
     Dosage: 50MG PER DAY
     Dates: start: 20090818
  2. DIPHENHYDRAMINE HYDROCHLORIDE [Concomitant]
     Dosage: 50MG PER DAY
     Route: 048
     Dates: start: 20090818
  3. DECADRON [Concomitant]
     Indication: PREMEDICATION
     Dosage: 10MG PER DAY
     Route: 048
     Dates: start: 20090818

REACTIONS (5)
  - ANAPHYLACTIC SHOCK [None]
  - BLOOD PRESSURE DECREASED [None]
  - DEPRESSED LEVEL OF CONSCIOUSNESS [None]
  - OXYGEN SATURATION DECREASED [None]
  - PALLOR [None]
